FAERS Safety Report 7297610-3 (Version None)
Quarter: 2011Q1

REPORT INFORMATION
  Report Type: 
  Country: None (occurrence: None)
  Receive Date: 20110216
  Receipt Date: 20110201
  Transmission Date: 20110831
  Serious: Yes (Death, Hospitalization)
  Sender: FDA-Public Use
  Company Number: PHHY2010BE87555

PATIENT
  Sex: Male

DRUGS (3)
  1. CERTICAN [Suspect]
     Indication: HEART TRANSPLANT
     Dosage: 2 MG, UNK
     Dates: start: 20101125
  2. CERTICAN [Suspect]
     Dosage: 1.5 MG, UNK
  3. NEORAL [Concomitant]
     Indication: NEPHROPATHY TOXIC
     Dosage: 150MG TWICE DAILY
     Dates: start: 19910821

REACTIONS (3)
  - HYPOVOLAEMIC SHOCK [None]
  - GENERAL PHYSICAL HEALTH DETERIORATION [None]
  - GASTROINTESTINAL HAEMORRHAGE [None]
